FAERS Safety Report 16759621 (Version 1)
Quarter: 2019Q3

REPORT INFORMATION
  Report Type: Spontaneous
  Country: FR (occurrence: FR)
  Receive Date: 20190830
  Receipt Date: 20190830
  Transmission Date: 20191005
  Serious: Yes (Hospitalization, Other)
  Sender: FDA-Public Use
  Company Number: FR-PFIZER INC-2019231789

PATIENT
  Age: 63 Year
  Sex: Female

DRUGS (5)
  1. RAMIPRIL. [Suspect]
     Active Substance: RAMIPRIL
     Dosage: 2.5 MG, DAILY
     Route: 048
     Dates: end: 20190501
  2. LERCANIDIPINE [Suspect]
     Active Substance: LERCANIDIPINE
     Dosage: 10 MG, DAILY
     Route: 048
     Dates: end: 20190501
  3. STAGID [Suspect]
     Active Substance: METFORMIN PAMOATE
     Dosage: 3 DF, DAILY
     Route: 048
     Dates: end: 20190501
  4. LIPANTHYL [Suspect]
     Active Substance: FENOFIBRATE
     Dosage: 145 MG, DAILY
     Route: 048
     Dates: end: 20190501
  5. TENORMINE [Suspect]
     Active Substance: ATENOLOL
     Indication: HYPERTENSION
     Dosage: 50 MG, DAILY
     Route: 048
     Dates: end: 20190501

REACTIONS (1)
  - Organising pneumonia [Recovered/Resolved]

NARRATIVE: CASE EVENT DATE: 20190503
